FAERS Safety Report 14812560 (Version 3)
Quarter: 2018Q2

REPORT INFORMATION
  Report Type: Report from Study
  Country: GB (occurrence: GB)
  Receive Date: 20180425
  Receipt Date: 20180525
  Transmission Date: 20180711
  Serious: Yes (Other)
  Sender: FDA-Public Use
  Company Number: GB-BIOGEN-2018BI00561969

PATIENT
  Age: 47 Year
  Sex: Female

DRUGS (3)
  1. PLEGRIDY [Suspect]
     Active Substance: PEGINTERFERON BETA-1A
     Route: 058
  2. PLEGRIDY [Suspect]
     Active Substance: PEGINTERFERON BETA-1A
     Route: 058
  3. PLEGRIDY [Suspect]
     Active Substance: PEGINTERFERON BETA-1A
     Indication: RELAPSING-REMITTING MULTIPLE SCLEROSIS
     Route: 058
     Dates: start: 20180416

REACTIONS (13)
  - Pain in extremity [Not Recovered/Not Resolved]
  - Hyperhidrosis [Recovered/Resolved]
  - Oral herpes [Recovered/Resolved]
  - Burning sensation [Not Recovered/Not Resolved]
  - Feeling hot [Not Recovered/Not Resolved]
  - Paralysis [Recovered/Resolved]
  - Feeling jittery [Recovered/Resolved]
  - Arthralgia [Recovered/Resolved]
  - Injection site reaction [Not Recovered/Not Resolved]
  - Chills [Recovered/Resolved]
  - Contusion [Not Recovered/Not Resolved]
  - Feeling cold [Recovered/Resolved]
  - Spinal pain [Recovered/Resolved]

NARRATIVE: CASE EVENT DATE: 20180416
